FAERS Safety Report 16149939 (Version 1)
Quarter: 2019Q2

REPORT INFORMATION
  Report Type: Spontaneous
  Country: CA (occurrence: CA)
  Receive Date: 20190402
  Receipt Date: 20190402
  Transmission Date: 20190711
  Serious: Yes (Other)
  Sender: FDA-Public Use
  Company Number: CA-ELI_LILLY_AND_COMPANY-CA201903013989

PATIENT
  Age: 23 Year
  Sex: Female

DRUGS (22)
  1. PALIPERIDONE. [Suspect]
     Active Substance: PALIPERIDONE
     Indication: SCHIZOPHRENIA
     Dosage: 1 DOSAGE FORM, UNKNOWN
     Route: 065
  2. PALIPERIDONE PALMITATE [Suspect]
     Active Substance: PALIPERIDONE PALMITATE
     Indication: PRODUCT USED FOR UNKNOWN INDICATION
     Dosage: UNK, UNKNOWN
     Route: 065
  3. ARIPIPRAZOLE. [Suspect]
     Active Substance: ARIPIPRAZOLE
     Indication: SCHIZOPHRENIA
     Dosage: 1 DOSAGE FORM, UNKNOWN
     Route: 065
  4. QUETIAPINE FUMARATE. [Suspect]
     Active Substance: QUETIAPINE FUMARATE
     Indication: SCHIZOPHRENIA
  5. OLANZAPINE. [Suspect]
     Active Substance: OLANZAPINE
     Indication: SCHIZOPHRENIA
     Dosage: UNK, UNKNOWN
     Route: 065
  6. APO-QUETIAPINE [Suspect]
     Active Substance: QUETIAPINE
     Indication: SCHIZOPHRENIA
     Dosage: UNK, UNKNOWN
     Route: 065
  7. CLOZAPINE. [Suspect]
     Active Substance: CLOZAPINE
     Indication: SCHIZOPHRENIA
     Dosage: UNK, UNKNOWN
     Route: 065
  8. LURASIDONE HYDROCHLORIDE. [Suspect]
     Active Substance: LURASIDONE HYDROCHLORIDE
     Indication: SCHIZOPHRENIA
     Dosage: 1 DOSAGE FORM, UNKNOWN
     Route: 065
  9. LATUDA [Concomitant]
     Active Substance: LURASIDONE HYDROCHLORIDE
     Indication: PRODUCT USED FOR UNKNOWN INDICATION
  10. PALIPERIDONE PALMITATE [Suspect]
     Active Substance: PALIPERIDONE PALMITATE
     Dosage: UNK, UNKNOWN
     Route: 065
  11. RISPERDAL [Concomitant]
     Active Substance: RISPERIDONE
     Indication: PRODUCT USED FOR UNKNOWN INDICATION
  12. ZUCLOPENTHIXOL ACETATE [Suspect]
     Active Substance: ZUCLOPENTHIXOL ACETATE
     Indication: SCHIZOPHRENIA
     Dosage: UNK, UNKNOWN
     Route: 065
  13. ZYPREXA [Suspect]
     Active Substance: OLANZAPINE
     Indication: SCHIZOPHRENIA
     Dosage: UNK, UNKNOWN
     Route: 065
  14. ZIPRASIDONE HYDROCHLORIDE. [Suspect]
     Active Substance: ZIPRASIDONE HYDROCHLORIDE
     Indication: SCHIZOPHRENIA
  15. ZUCLOPENTHIXOL [Suspect]
     Active Substance: ZUCLOPENTHIXOL
     Indication: SCHIZOPHRENIA
     Dosage: UNK, UNKNOWN
     Route: 065
  16. ABILIFY MAINTENA [Suspect]
     Active Substance: ARIPIPRAZOLE
     Indication: SCHIZOPHRENIA
     Dosage: UNK, UNKNOWN
     Route: 065
  17. PALIPERIDONE PALMITATE [Suspect]
     Active Substance: PALIPERIDONE PALMITATE
     Indication: SCHIZOPHRENIA
     Dosage: UNK, UNKNOWN
     Route: 065
  18. RISPERIDONE. [Suspect]
     Active Substance: RISPERIDONE
     Indication: SCHIZOPHRENIA
     Dosage: 1 DOSAGE FORM, UNKNOWN
     Route: 065
  19. SAPHRIS [Suspect]
     Active Substance: ASENAPINE MALEATE
     Indication: SCHIZOPHRENIA
     Dosage: UNK, UNKNOWN
     Route: 065
  20. ZIPRASIDONE HYDROCHLORIDE. [Suspect]
     Active Substance: ZIPRASIDONE HYDROCHLORIDE
     Indication: SCHIZOPHRENIA
  21. INVEGA [Concomitant]
     Active Substance: PALIPERIDONE
     Indication: SCHIZOPHRENIA
  22. FLUPENTIXOL DIHYDROCHLORIDE [Suspect]
     Active Substance: FLUPENTIXOL DIHYDROCHLORIDE
     Indication: SCHIZOPHRENIA
     Dosage: UNK, UNKNOWN
     Route: 065

REACTIONS (13)
  - Schizophrenia [Unknown]
  - Dyskinesia [Unknown]
  - Sexual dysfunction [Unknown]
  - Anosognosia [Unknown]
  - Dystonia [Unknown]
  - Suicide attempt [Unknown]
  - Disturbance in social behaviour [Unknown]
  - Personality change [Unknown]
  - Sedation [Unknown]
  - Blood glucose increased [Unknown]
  - Metabolic disorder [Unknown]
  - Blood prolactin abnormal [Unknown]
  - Drug ineffective [Unknown]
